FAERS Safety Report 7557354-7 (Version None)
Quarter: 2011Q2

REPORT INFORMATION
  Report Type: 
  Country: None (occurrence: None)
  Receive Date: 20110620
  Receipt Date: 20110608
  Transmission Date: 20111010
  Serious: Yes (Other)
  Sender: FDA-Public Use
  Company Number: PHHY2011US50437

PATIENT
  Sex: Male

DRUGS (5)
  1. SPRYCEL [Suspect]
     Dosage: UNK
  2. CALCIUM CARBONATE [Concomitant]
  3. SAW PALMETTO [Concomitant]
  4. VITAMIN B-12 [Concomitant]
  5. TASIGNA [Suspect]
     Dosage: 400 MG, BID
     Route: 048

REACTIONS (2)
  - PULMONARY OEDEMA [None]
  - HEPATIC ENZYME INCREASED [None]
